FAERS Safety Report 24224177 (Version 1)
Quarter: 2024Q3

REPORT INFORMATION
  Report Type: Spontaneous
  Country: US (occurrence: US)
  Receive Date: 20240819
  Receipt Date: 20240819
  Transmission Date: 20241016
  Serious: No
  Sender: RARE DISEASE THERAPEUTICS
  Company Number: US-Rare Disease Therapeutics, Inc.-2160596

PATIENT
  Age: 29 Year
  Sex: Male
  Weight: 95.3 kg

DRUGS (2)
  1. ANAVIP [Suspect]
     Active Substance: PIT VIPER (CROTALINAE) IMMUNE GLOBULIN ANTIVENIN (EQUINE)
     Indication: Snake bite
     Route: 042
     Dates: start: 20240711, end: 20240711
  2. HYDROMORPHONE [Concomitant]
     Active Substance: HYDROMORPHONE
     Route: 042
     Dates: start: 20240710

REACTIONS (3)
  - Malaise [Recovered/Resolved]
  - Swelling face [Recovered/Resolved]
  - Rash erythematous [Recovered/Resolved]

NARRATIVE: CASE EVENT DATE: 20240711
